FAERS Safety Report 14527884 (Version 1)
Quarter: 2018Q1

REPORT INFORMATION
  Report Type: Spontaneous
  Country: US (occurrence: US)
  Receive Date: 20180213
  Receipt Date: 20180213
  Transmission Date: 20180509
  Serious: No
  Sender: FDA-Public Use
  Company Number: US-009507513-1801USA010212

PATIENT
  Sex: Female
  Weight: 95.24 kg

DRUGS (1)
  1. NEXPLANON [Suspect]
     Active Substance: ETONOGESTREL
     Indication: CONTRACEPTION
     Dosage: 1 IMPLANT, LEFT ARM
     Route: 059
     Dates: start: 201405

REACTIONS (10)
  - Nerve injury [Unknown]
  - Depression [Unknown]
  - Complication associated with device [Unknown]
  - Mood swings [Unknown]
  - Acne [Unknown]
  - Anxiety [Unknown]
  - Surgery [Unknown]
  - Device deployment issue [Unknown]
  - Complication of device removal [Unknown]
  - Polymenorrhoea [Unknown]
